FAERS Safety Report 7699076-8 (Version None)
Quarter: 2011Q3

REPORT INFORMATION
  Report Type: 
  Country: None (occurrence: None)
  Receive Date: 20110819
  Receipt Date: 20110808
  Transmission Date: 20111222
  Serious: Yes (Other)
  Sender: FDA-Public Use
  Company Number: US-GENENTECH-322942

PATIENT

DRUGS (2)
  1. BENDAMUSTINE [Suspect]
     Indication: HAEMATOLOGICAL MALIGNANCY
     Dosage: 90 MG/M2, 1/WEEK
     Route: 065
  2. RITUXIMAB [Suspect]
     Indication: HAEMATOLOGICAL MALIGNANCY
     Dosage: 375 MG/M2, 1/WEEK
     Route: 065

REACTIONS (1)
  - TRANSAMINASES INCREASED [None]
